FAERS Safety Report 11548205 (Version 1)
Quarter: 2015Q3

REPORT INFORMATION
  Report Type: Spontaneous
  Country: US (occurrence: US)
  Receive Date: 20150924
  Receipt Date: 20150924
  Transmission Date: 20151125
  Serious: No
  Sender: FDA-Public Use
  Company Number: US-INCYTE CORPORATION-2015IN000906

PATIENT
  Age: 91 Year
  Sex: Female

DRUGS (7)
  1. JAKAFI [Suspect]
     Active Substance: RUXOLITINIB
     Dosage: 10 MG, BID
     Route: 048
     Dates: end: 201502
  2. JAKAFI [Suspect]
     Active Substance: RUXOLITINIB
     Dosage: NOT SPECIFIED
     Route: 048
     Dates: start: 201502
  3. SYNTHROID [Concomitant]
     Active Substance: LEVOTHYROXINE SODIUM
  4. CALCIUM [Concomitant]
     Active Substance: CALCIUM
  5. ASPIRIN. [Concomitant]
     Active Substance: ASPIRIN
  6. LIPITOR [Concomitant]
     Active Substance: ATORVASTATIN CALCIUM
  7. VITAMIN D                          /00107901/ [Concomitant]
     Active Substance: ERGOCALCIFEROL

REACTIONS (1)
  - Platelet count increased [Unknown]

NARRATIVE: CASE EVENT DATE: 20150227
